FAERS Safety Report 14974360 (Version 3)
Quarter: 2018Q2

REPORT INFORMATION
  Report Type: Report from Study
  Country: KR (occurrence: KR)
  Receive Date: 20180605
  Receipt Date: 20180630
  Transmission Date: 20180711
  Serious: Yes (Death, Hospitalization)
  Sender: FDA-Public Use
  Company Number: KR-AMGEN-KORNI2018074987

PATIENT
  Age: 80 Year
  Sex: Male

DRUGS (14)
  1. FLORINEF ACETATE [Concomitant]
     Active Substance: FLUDROCORTISONE ACETATE
     Indication: PARKINSON^S DISEASE
     Dosage: 0.1 MG, QD
     Route: 048
     Dates: start: 20170824
  2. MADOPAR [Concomitant]
     Active Substance: BENSERAZIDE HYDROCHLORIDE\LEVODOPA
     Indication: PARKINSON^S DISEASE
     Dosage: 250 MG, BID
     Route: 048
     Dates: start: 20160601
  3. LACIDOFIL [Concomitant]
     Active Substance: LACTOBACILLUS ACIDOPHILUS\LACTOBACILLUS RHAMNOSUS
     Indication: CONSTIPATION PROPHYLAXIS
     Dosage: 20 MG, BID
     Route: 048
     Dates: start: 20141231
  4. SERETIDE [Concomitant]
     Active Substance: FLUTICASONE PROPIONATE\SALMETEROL XINAFOATE
     Indication: ASTHMA
     Dosage: 250 UNK, BID
     Route: 055
     Dates: start: 20160221
  5. VITAMIN D [Concomitant]
     Active Substance: CHOLECALCIFEROL
     Dosage: UNK
  6. DENOSUMAB [Suspect]
     Active Substance: DENOSUMAB
     Indication: OSTEOPOROSIS
     Dosage: 60 MG, Q6MO
     Route: 058
     Dates: start: 20170801, end: 20180123
  7. ASIMA [Concomitant]
     Active Substance: DOXOFYLLINE
     Indication: ASTHMA
     Dosage: 400 MG, QD
     Route: 048
     Dates: start: 20160220
  8. MONTEKAN [Concomitant]
     Indication: ASTHMA
     Dosage: 10 MG, QD
     Route: 048
     Dates: start: 20160221
  9. NEUROMED [Concomitant]
     Indication: PARKINSON^S DISEASE
     Dosage: 800 MG, BID
     Route: 048
     Dates: start: 20141231
  10. MOTILITONE [Concomitant]
     Active Substance: HERBALS
     Indication: PROPHYLAXIS
     Dosage: 30 MG, BID
     Route: 048
     Dates: start: 20141231
  11. CALCIUM [Concomitant]
     Active Substance: CALCIUM
     Dosage: UNK
  12. DICAMAX [Concomitant]
     Indication: OSTEOPOROSIS
     Dosage: UNK DF, QD
     Route: 048
     Dates: start: 20170801
  13. MIDRON [Concomitant]
     Indication: ORTHOSTATIC HYPOTENSION
     Dosage: 2.5 MG, BID
     Route: 048
     Dates: start: 20151021
  14. MAGNESIUM OXIDE. [Concomitant]
     Active Substance: MAGNESIUM OXIDE
     Indication: CONSTIPATION PROPHYLAXIS
     Dosage: 250 MG, BID
     Route: 048
     Dates: start: 20141231

REACTIONS (1)
  - Bacterial sepsis [Fatal]

NARRATIVE: CASE EVENT DATE: 20180503
